FAERS Safety Report 17386789 (Version 1)
Quarter: 2020Q1

REPORT INFORMATION
  Report Type: Spontaneous
  Country: FR (occurrence: FR)
  Receive Date: 20200206
  Receipt Date: 20200206
  Transmission Date: 20200409
  Serious: Yes (Other)
  Sender: FDA-Public Use
  Company Number: FR-ASTRAZENECA-2020SE16356

PATIENT
  Age: 67 Year
  Sex: Female

DRUGS (8)
  1. SERESTA [Concomitant]
     Active Substance: OXAZEPAM
     Dosage: 10
  2. PRAVASTATIN. [Concomitant]
     Active Substance: PRAVASTATIN
     Dosage: 20
  3. XEROQUEL [Suspect]
     Active Substance: QUETIAPINE FUMARATE
     Indication: BIPOLAR I DISORDER
     Route: 048
     Dates: start: 201708
  4. XEROQUEL [Suspect]
     Active Substance: QUETIAPINE FUMARATE
     Indication: BIPOLAR I DISORDER
     Route: 048
     Dates: end: 20180104
  5. TRULICITY [Concomitant]
     Active Substance: DULAGLUTIDE
  6. METFORMIN [Concomitant]
     Active Substance: METFORMIN HYDROCHLORIDE
     Dosage: 1000
  7. TRIATEC [Concomitant]
     Dosage: 2.5
  8. IMOVANE [Concomitant]
     Active Substance: ZOPICLONE
     Dosage: 2.5

REACTIONS (3)
  - Reversible splenial lesion syndrome [Unknown]
  - Hyponatraemia [Unknown]
  - Encephalopathy [Unknown]

NARRATIVE: CASE EVENT DATE: 2017
